FAERS Safety Report 9515818 (Version 1)
Quarter: 2013Q3

REPORT INFORMATION
  Report Type: Spontaneous
  Country: US (occurrence: US)
  Receive Date: 20130911
  Receipt Date: 20130911
  Transmission Date: 20140515
  Serious: Yes (Other)
  Sender: FDA-Public Use
  Company Number: US-BAYER-2013-109627

PATIENT
  Sex: 0

DRUGS (1)
  1. ALEVE CAPLET [Suspect]

REACTIONS (5)
  - Swelling face [None]
  - Oedema peripheral [None]
  - Lip swelling [None]
  - Drug hypersensitivity [None]
  - Pharyngeal oedema [None]
